FAERS Safety Report 7358303-7 (Version None)
Quarter: 2011Q1

REPORT INFORMATION
  Report Type: 
  Country: None (occurrence: None)
  Receive Date: 20110317
  Receipt Date: 20110303
  Transmission Date: 20110831
  Serious: Yes (Hospitalization, Other)
  Sender: FDA-Public Use
  Company Number: PHHY2010BR65631

PATIENT
  Sex: Female

DRUGS (12)
  1. SPIRONOLACTONE [Concomitant]
  2. SIMVASTATIN [Concomitant]
     Indication: CARDIAC DISORDER
     Dosage: 40 MG 1 TABLET
     Route: 048
  3. SERTRALINE [Concomitant]
     Indication: DEPRESSION
     Dosage: 50 MG 1 TABLET
     Route: 048
  4. DIOVAN [Suspect]
     Indication: HYPERTENSION
     Dosage: 320 MG
     Route: 048
     Dates: start: 20090101
  5. OMEPRAZOLE [Concomitant]
     Indication: GASTRIC DISORDER
     Dosage: 40 MG 1TABLET
     Route: 048
  6. IMIPRAMINE HYDROCHLORIDE [Concomitant]
     Indication: DEPRESSION
     Dosage: 25 MG 1 TABLEY
     Route: 048
  7. HYDROCHLOROTHIAZIDE [Concomitant]
     Dosage: 25 MG
  8. PHENOBARBITAL [Concomitant]
     Indication: SLEEP DISORDER
     Dosage: 100 MG
     Route: 048
  9. AAS [Concomitant]
     Indication: CARDIAC DISORDER
     Dosage: 10O MG 1 TABLET
     Route: 048
  10. SELOZOK [Concomitant]
     Indication: CARDIAC DISORDER
     Dosage: 100 MG 1 TABLET
     Route: 048
  11. LOSARTAN [Concomitant]
     Dosage: 50 MG
  12. AMLODIPINE [Concomitant]
     Dosage: 10 MG

REACTIONS (5)
  - BLOOD PRESSURE INCREASED [None]
  - DIABETIC COMPLICATION [None]
  - INFECTION [None]
  - POOR PERIPHERAL CIRCULATION [None]
  - LEG AMPUTATION [None]
